FAERS Safety Report 12272390 (Version 2)
Quarter: 2016Q2

REPORT INFORMATION
  Report Type: Spontaneous
  Country: FR (occurrence: FR)
  Receive Date: 20160415
  Receipt Date: 20160602
  Transmission Date: 20160815
  Serious: Yes (Hospitalization)
  Sender: FDA-Public Use
  Company Number: FR-INDIVIOR LIMITED-INDV-089675-2016

PATIENT
  Sex: Male

DRUGS (2)
  1. SUBUTEX [Suspect]
     Active Substance: BUPRENORPHINE HYDROCHLORIDE
     Indication: DRUG REHABILITATION
     Dosage: 1 DF, BID (IN THE MORNING AND IN THE EVENING)
     Route: 058
  2. SERESTA [Concomitant]
     Active Substance: OXAZEPAM
     Indication: PRODUCT USED FOR UNKNOWN INDICATION
     Dosage: 50 MG, TID (ONE DOSAGE FORM IN THE MORNING AND TWO DOSAGE FORM IN THE EVENING)
     Route: 065

REACTIONS (5)
  - Hepatitis C [Unknown]
  - Intentional product use issue [Unknown]
  - Septic necrosis [Recovered/Resolved]
  - Abscess [Recovered/Resolved]
  - Intentional product misuse [Unknown]
